FAERS Safety Report 17549924 (Version 2)
Quarter: 2020Q1

REPORT INFORMATION
  Report Type: Spontaneous
  Country: US (occurrence: US)
  Receive Date: 20200317
  Receipt Date: 20200324
  Transmission Date: 20200409
  Serious: No
  Sender: FDA-Public Use
  Company Number: US-PFIZER INC-2020113454

PATIENT
  Age: 68 Year
  Sex: Male

DRUGS (2)
  1. VIRACEPT [Suspect]
     Active Substance: NELFINAVIR MESYLATE
     Dosage: 1 DF, 2X/DAY (1 TABLET TWICE DAILY)
  2. ABACAVIR\LAMIVUDINE\ZIDOVUDINE. [Suspect]
     Active Substance: ABACAVIR\LAMIVUDINE\ZIDOVUDINE
     Dosage: 1 DF, 2X/DAY (ONE TABLET TWICE DAILY)
     Dates: start: 2018

REACTIONS (1)
  - Pruritus [Recovered/Resolved]

NARRATIVE: CASE EVENT DATE: 2018
